FAERS Safety Report 17029926 (Version 1)
Quarter: 2019Q4

REPORT INFORMATION
  Report Type: Spontaneous
  Country: DE (occurrence: DE)
  Receive Date: 20191114
  Receipt Date: 20191114
  Transmission Date: 20200122
  Serious: Yes (Other)
  Sender: FDA-Public Use
  Company Number: DE-TEVA-2019-DE-1133981

PATIENT
  Age: 7 Decade
  Sex: Male
  Weight: 88 kg

DRUGS (1)
  1. LEVOFLOXACIN-RATIOPHARM 500 MG FILMTABLETTEN [Suspect]
     Active Substance: LEVOFLOXACIN
     Indication: HAEMOPHILUS INFECTION
     Dosage: 1000 MILLIGRAM DAILY;
     Route: 048
     Dates: start: 20151107, end: 20151114

REACTIONS (9)
  - Basal cell carcinoma [Recovered/Resolved]
  - Epicondylitis [Recovering/Resolving]
  - Nausea [Recovered/Resolved]
  - Depression [Recovered/Resolved]
  - Tachycardia [Recovered/Resolved]
  - Hypertension [Recovered/Resolved]
  - Insomnia [Recovered/Resolved]
  - Periarthritis [Recovered/Resolved]
  - Headache [Recovered/Resolved]

NARRATIVE: CASE EVENT DATE: 20151107
